FAERS Safety Report 12747248 (Version 1)
Quarter: 2016Q3

REPORT INFORMATION
  Report Type: Report from Study
  Country: CA (occurrence: CA)
  Receive Date: 20160915
  Receipt Date: 20160915
  Transmission Date: 20161109
  Serious: Yes (Hospitalization, Other)
  Sender: FDA-Public Use
  Company Number: CA-JNJFOC-20160912576

PATIENT
  Age: 65 Year
  Sex: Male

DRUGS (11)
  1. IMURAN [Concomitant]
     Active Substance: AZATHIOPRINE
     Route: 048
  2. HCTZ [Concomitant]
     Active Substance: HYDROCHLOROTHIAZIDE
     Route: 065
  3. OXYNEO [Concomitant]
     Active Substance: OXYCODONE
     Route: 048
  4. IRON [Concomitant]
     Active Substance: IRON
     Route: 048
  5. NORVASC [Concomitant]
     Active Substance: AMLODIPINE BESYLATE
     Route: 048
  6. CIPRO [Concomitant]
     Active Substance: CIPROFLOXACIN HYDROCHLORIDE
     Route: 048
  7. CLONAZEPAM. [Concomitant]
     Active Substance: CLONAZEPAM
     Route: 065
  8. REMICADE [Suspect]
     Active Substance: INFLIXIMAB
     Indication: CROHN^S DISEASE
     Route: 042
     Dates: start: 201407
  9. ENTOCORT [Concomitant]
     Active Substance: BUDESONIDE
     Route: 048
  10. NEXIUM [Concomitant]
     Active Substance: ESOMEPRAZOLE MAGNESIUM
     Route: 048
  11. VITAMIN B12 [Concomitant]
     Active Substance: CYANOCOBALAMIN
     Route: 065

REACTIONS (6)
  - Frequent bowel movements [Unknown]
  - Prostatomegaly [Recovering/Resolving]
  - Abdominal distension [Unknown]
  - Urinary retention [Not Recovered/Not Resolved]
  - Haematochezia [Unknown]
  - Prostatic disorder [Recovering/Resolving]

NARRATIVE: CASE EVENT DATE: 201608
